FAERS Safety Report 8114257-7 (Version None)
Quarter: 2012Q1

REPORT INFORMATION
  Report Type: 
  Country: None (occurrence: None)
  Receive Date: 20120206
  Receipt Date: 20120123
  Transmission Date: 20120608
  Serious: Yes (Hospitalization)
  Sender: FDA-Public Use
  Company Number: US-BIOGENIDEC-2009BI031164

PATIENT
  Sex: Female

DRUGS (3)
  1. TYSABRI [Suspect]
     Indication: MULTIPLE SCLEROSIS
     Route: 042
     Dates: start: 20070102
  2. LOVENOX [Concomitant]
     Dates: start: 20111222, end: 20111201
  3. ASPIRIN [Concomitant]
     Indication: PROPHYLAXIS
     Dates: start: 20101101, end: 20101101

REACTIONS (10)
  - PROCEDURAL PAIN [None]
  - GAIT DISTURBANCE [None]
  - FALL [None]
  - VOMITING [None]
  - MULTIPLE SCLEROSIS RELAPSE [None]
  - HERPES ZOSTER [None]
  - ROTATOR CUFF SYNDROME [None]
  - SOMNOLENCE [None]
  - ARTHRITIS [None]
  - PAIN IN EXTREMITY [None]
